FAERS Safety Report 6401259-1 (Version None)
Quarter: 2009Q4

REPORT INFORMATION
  Report Type: 
  Country: None (occurrence: None)
  Receive Date: 20091015
  Receipt Date: 20091008
  Transmission Date: 20100525
  Serious: Yes (Hospitalization, Other)
  Sender: FDA-Public Use
  Company Number: US-JNJFOC-20091003841

PATIENT
  Sex: Female
  Weight: 45.36 kg

DRUGS (2)
  1. DURAGESIC-100 [Suspect]
     Indication: MYALGIA
     Route: 062
  2. VICODIN [Concomitant]
     Indication: PAIN
     Route: 048

REACTIONS (6)
  - ADVERSE EVENT [None]
  - CARDIAC DISORDER [None]
  - CARDIAC FAILURE [None]
  - COLON CANCER [None]
  - HEADACHE [None]
  - INCORRECT DRUG ADMINISTRATION DURATION [None]
